FAERS Safety Report 9030337 (Version 2)
Quarter: 2013Q1

REPORT INFORMATION
  Report Type: Spontaneous
  Country: FR (occurrence: FR)
  Receive Date: 20130122
  Receipt Date: 20130131
  Transmission Date: 20140127
  Serious: Yes (Death, Life-Threatening, Hospitalization)
  Sender: FDA-Public Use
  Company Number: FR-PFIZER INC-2013021266

PATIENT
  Age: 53 Year
  Sex: Male

DRUGS (5)
  1. SUTENT [Suspect]
     Indication: RENAL CANCER METASTATIC
     Dosage: 37.5 MG, PER DAY,REGIMEN OF 4 WEEKS OF TREATMENT, FOLLOWED BY 2 WEEKS OF THERAPEUTIC DISCONTINUATION
     Route: 048
     Dates: start: 20120326
  2. SUTENT [Suspect]
     Dosage: 50 MG, PER DAY,REGIMEN OF 4 WEEKS OF TREATMENT, FOLLOWED BY 2 WEEKS OF THERAPEUTIC DISCONTINUATION
     Route: 048
     Dates: start: 201205, end: 20121118
  3. INEXIUM [Concomitant]
     Indication: ABDOMINAL PAIN UPPER
     Dosage: UNK
     Route: 048
     Dates: start: 2012, end: 20121122
  4. GAVISCON [Concomitant]
     Indication: ABDOMINAL PAIN UPPER
     Dosage: UNK
     Route: 048
     Dates: start: 2012, end: 20121122
  5. PARACETAMOL [Concomitant]
     Dosage: 1 G, ONCE SINGLE
     Dates: start: 201211, end: 201211

REACTIONS (3)
  - Cardiogenic shock [Fatal]
  - Cardiac failure congestive [Fatal]
  - Hepatitis fulminant [Recovering/Resolving]
